FAERS Safety Report 10506074 (Version 3)
Quarter: 2014Q4

REPORT INFORMATION
  Report Type: Report from Study
  Country: IT (occurrence: IT)
  Receive Date: 20141008
  Receipt Date: 20141014
  Transmission Date: 20150528
  Serious: Yes (Death)
  Sender: FDA-Public Use
  Company Number: PHHY2014IT086917

PATIENT
  Age: 57 Year
  Sex: Female
  Weight: 64 kg

DRUGS (3)
  1. NATALIZUMAB [Suspect]
     Active Substance: NATALIZUMAB
     Indication: MULTIPLE SCLEROSIS
     Dosage: 300 MG, QMO
     Route: 042
     Dates: start: 20100412, end: 20120315
  2. GILENYA [Suspect]
     Active Substance: FINGOLIMOD HYDROCHLORIDE
     Dates: start: 20121122, end: 20130221
  3. NATALIZUMAB [Suspect]
     Active Substance: NATALIZUMAB
     Dosage: 300 MG, QMO
     Route: 042
     Dates: start: 20130507, end: 20131218

REACTIONS (2)
  - Respiratory failure [Fatal]
  - Multiple sclerosis relapse [Fatal]

NARRATIVE: CASE EVENT DATE: 20140114
